FAERS Safety Report 5823448-7 (Version None)
Quarter: 2008Q3

REPORT INFORMATION
  Report Type: 
  Country: None (occurrence: None)
  Receive Date: 20080725
  Receipt Date: 20071205
  Transmission Date: 20090109
  Serious: No
  Sender: FDA-Public Use
  Company Number: US-ABBOTT-07P-163-0427852-00

PATIENT
  Age: 22 Year
  Sex: Female

DRUGS (3)
  1. NORVIR [Suspect]
     Indication: ANTIRETROVIRAL THERAPY
     Dosage: WAS NOT TAKING MEDICATION AT TIME OF CONCEPTION
     Route: 048
     Dates: start: 20070710
  2. LAMIVUDINE + ZIDOVUDINE [Suspect]
     Indication: ANTIRETROVIRAL THERAPY
     Route: 048
     Dates: start: 20070710
  3. SAQUINAVIR [Suspect]
     Indication: ANTIRETROVIRAL THERAPY
     Dosage: PATIENT WAS NOT TAKING MEDICATION AT TIME OF CONCEPTION
     Route: 048
     Dates: start: 20070710

REACTIONS (2)
  - PREMATURE LABOUR [None]
  - PREMATURE RUPTURE OF MEMBRANES [None]
